FAERS Safety Report 4288026-2 (Version None)
Quarter: 2004Q1

REPORT INFORMATION
  Report Type: 
  Country: None (occurrence: None)
  Receive Date: 20040209
  Receipt Date: 20031119
  Transmission Date: 20041129
  Serious: No
  Sender: FDA-Public Use
  Company Number: US-GLAXOSMITHKLINE-A0440381A

PATIENT
  Sex: Male

DRUGS (5)
  1. PAXIL [Suspect]
     Indication: PANIC DISORDER
     Dosage: 12.5MG PER DAY
     Route: 048
     Dates: start: 20031119
  2. NEXIUM [Concomitant]
  3. ZANTAC [Concomitant]
  4. XANAX [Concomitant]
  5. FLONASE [Concomitant]

REACTIONS (2)
  - FEELING HOT [None]
  - HEART RATE INCREASED [None]
